FAERS Safety Report 5464340-X (Version None)
Quarter: 2007Q3

REPORT INFORMATION
  Report Type: 
  Country: None (occurrence: None)
  Receive Date: 20070921
  Receipt Date: 20070911
  Transmission Date: 20080115
  Serious: Yes (Hospitalization)
  Sender: FDA-Public Use
  Company Number: FR-ROCHE-517355

PATIENT
  Age: 67 Year
  Sex: Female

DRUGS (13)
  1. VALIUM [Suspect]
     Indication: DRUG USE FOR UNKNOWN INDICATION
     Route: 048
  2. FENOFIBRATE [Suspect]
     Indication: DRUG USE FOR UNKNOWN INDICATION
     Route: 048
     Dates: end: 20070702
  3. COTAREG [Suspect]
     Indication: HYPERTENSION
     Route: 048
     Dates: end: 20070702
  4. NOVONORM [Suspect]
     Route: 048
     Dates: end: 20070702
  5. DEPAKENE [Suspect]
     Indication: EPILEPSY
     Route: 048
  6. DEPAKENE [Suspect]
     Dosage: DOSAGE REDUCED.
     Route: 048
     Dates: end: 20070708
  7. TEGRETOL [Suspect]
     Indication: EPILEPSY
     Route: 048
  8. TEGRETOL [Suspect]
     Dosage: DOSAGE REDUCED.
     Route: 048
  9. TENSTATEN [Suspect]
     Indication: HYPERTENSION
     Route: 048
     Dates: end: 20070702
  10. EQUANIL [Suspect]
     Indication: DRUG USE FOR UNKNOWN INDICATION
     Route: 048
  11. AVANDAMET [Suspect]
     Indication: DRUG USE FOR UNKNOWN INDICATION
     Route: 048
  12. BRICANYL [Concomitant]
     Route: 055
  13. ATROVENT [Concomitant]
     Route: 055

REACTIONS (1)
  - METABOLIC ENCEPHALOPATHY [None]
